FAERS Safety Report 10284046 (Version 1)
Quarter: 2014Q3

REPORT INFORMATION
  Report Type: Spontaneous
  Country: GB (occurrence: GB)
  Receive Date: 20140708
  Receipt Date: 20140708
  Transmission Date: 20150326
  Serious: Yes (Other)
  Sender: FDA-Public Use
  Company Number: GB-PFIZER INC-2014184782

PATIENT
  Age: 30 Year
  Sex: Female
  Weight: 65.31 kg

DRUGS (3)
  1. OMEGA-3 FISH OIL [Concomitant]
     Active Substance: FISH OIL\OMEGA-3 FATTY ACIDS
     Dosage: UNK
  2. LYRICA [Suspect]
     Active Substance: PREGABALIN
     Indication: NEURALGIA
     Dosage: LOWEST DOSE TABLET - I THINK IT WAS 25MG (I CAN CHECK WITH GENERAL PRACTITIONER TO CONFIRM)
     Route: 048
     Dates: start: 20100701, end: 20100915
  3. MULTIBIONTA [Concomitant]
     Dosage: UNK

REACTIONS (6)
  - Mood altered [Recovered/Resolved]
  - Memory impairment [Not Recovered/Not Resolved]
  - Agitation [Recovered/Resolved]
  - Anger [Recovered/Resolved]
  - Irritability [Recovered/Resolved]
  - Aggression [Recovered/Resolved]

NARRATIVE: CASE EVENT DATE: 20100701
